FAERS Safety Report 22083173 (Version 1)
Quarter: 2023Q1

REPORT INFORMATION
  Report Type: Spontaneous
  Country: HU (occurrence: HU)
  Receive Date: 20230310
  Receipt Date: 20230310
  Transmission Date: 20230418
  Serious: Yes (Death)
  Sender: FDA-Public Use
  Company Number: None

PATIENT
  Age: 85 Year
  Sex: Male
  Weight: 77 kg

DRUGS (8)
  1. CAPECITABINE [Suspect]
     Active Substance: CAPECITABINE
     Indication: Colon cancer metastatic
     Dosage: STRENGTH: 500 MG
     Dates: start: 20230118, end: 20230131
  2. CARDILOPIN [Concomitant]
     Indication: Hypertension
     Dosage: STRENGTH: 10 MG
  3. BILASTINE [Concomitant]
     Active Substance: BILASTINE
     Indication: Rhinitis allergic
     Dosage: STRENGTH: 20 MG
  4. RILMENIDINE [Concomitant]
     Active Substance: RILMENIDINE
     Dosage: STRENGTH: 1MG
  5. FINASTERIDE [Concomitant]
     Active Substance: FINASTERIDE
     Indication: Benign prostatic hyperplasia
     Dosage: STRENGTH: 5 MG
  6. ENOXAPARIN SODIUM [Concomitant]
     Active Substance: ENOXAPARIN SODIUM
     Indication: Prophylaxis
     Dosage: STRENGTH:4000 IU INTERNATIONAL UNIT(S)
  7. Sorbifer [Concomitant]
     Indication: Anaemia
     Dosage: STRENGTH: 320 MG
  8. ALPRAZOLAM [Concomitant]
     Active Substance: ALPRAZOLAM
     Dosage: STRENGTH: 0.25 MG

REACTIONS (4)
  - Neutropenia [Fatal]
  - Diarrhoea [Fatal]
  - Vomiting [Fatal]
  - Abdominal pain [Fatal]

NARRATIVE: CASE EVENT DATE: 20230127
